FAERS Safety Report 4418136-8 (Version None)
Quarter: 2004Q3

REPORT INFORMATION
  Report Type: 
  Country: None (occurrence: None)
  Receive Date: 20040805
  Receipt Date: 20040805
  Transmission Date: 20050211
  Serious: Yes (Hospitalization)
  Sender: FDA-Public Use
  Company Number: None

PATIENT
  Age: 48 Year
  Sex: Female

DRUGS (3)
  1. PROLEUKIN [Suspect]
     Indication: MALIGNANT MELANOMA
     Dosage: 20 MU SQ/DAY
     Route: 058
     Dates: start: 20040325, end: 20040329
  2. IFN [Suspect]
     Indication: MALIGNANT MELANOMA
     Dosage: 3 MU SQ DAY
     Route: 058
     Dates: start: 20040330, end: 20040419
  3. DROSOPHILA CELL STIMULATED AUTO CD 8 LYMPHOCYTES [Suspect]
     Indication: MALIGNANT MELANOMA

REACTIONS (4)
  - BACTERAEMIA [None]
  - HAEMOGLOBIN DECREASED [None]
  - PNEUMONIA [None]
  - URINARY TRACT INFECTION [None]
